FAERS Safety Report 9454699 (Version 1)
Quarter: 2013Q3

REPORT INFORMATION
  Report Type: Spontaneous
  Country: US (occurrence: None)
  Receive Date: 20130808
  Receipt Date: 20130808
  Transmission Date: 20140515
  Serious: Yes (Other)
  Sender: FDA-Public Use
  Company Number: 2515444201300006

PATIENT
  Sex: Female

DRUGS (3)
  1. BANANA BOAT ULTRAMIST SPORT COOL ZONE SPF30 [Suspect]
     Indication: SUNBURN
     Dosage: NO DOSAGE LIMIT
     Route: 061
     Dates: start: 20130709
  2. BANANA BOAT ULTRAMIST SPORT COOL ZONE SPF30 [Suspect]
     Indication: PROPHYLAXIS
     Dosage: NO DOSAGE LIMIT
     Route: 061
     Dates: start: 20130709
  3. THYROID MEDICATION [Concomitant]

REACTIONS (3)
  - Rash [None]
  - Swelling [None]
  - Dermatitis contact [None]
